FAERS Safety Report 8588847-1 (Version None)
Quarter: 2012Q3

REPORT INFORMATION
  Report Type: 
  Country: None (occurrence: None)
  Receive Date: 20120813
  Receipt Date: 20120807
  Transmission Date: 20120928
  Serious: Yes (Hospitalization)
  Sender: FDA-Public Use
  Company Number: BR-SANOFI-AVENTIS-2012SA056698

PATIENT
  Age: 74 Year
  Sex: Male
  Weight: 78 kg

DRUGS (5)
  1. LANTUS SOLOSTAR [Suspect]
     Route: 058
     Dates: start: 20090101
  2. SOLOSTAR [Suspect]
     Indication: DEVICE THERAPY
  3. METFORMIN HCL [Concomitant]
     Dosage: STRENGTH: 50/850 MG
     Route: 048
     Dates: start: 20090101
  4. PLAVIX [Concomitant]
     Dosage: STRENGTH: 75 MG
     Route: 048
     Dates: start: 20090101
  5. LASIX [Concomitant]
     Indication: RENAL DISORDER
     Dosage: STRENGTH: 40 MG
     Route: 048
     Dates: start: 20090101

REACTIONS (9)
  - SYNCOPE [None]
  - HYPERGLYCAEMIA [None]
  - SKIN FISSURES [None]
  - EAR PAIN [None]
  - COMA [None]
  - HEARING IMPAIRED [None]
  - PAIN IN EXTREMITY [None]
  - SKULL FRACTURE [None]
  - VISUAL ACUITY REDUCED [None]
